FAERS Safety Report 19396793 (Version 1)
Quarter: 2021Q2

REPORT INFORMATION
  Report Type: Spontaneous
  Country: US (occurrence: US)
  Receive Date: 20210609
  Receipt Date: 20210609
  Transmission Date: 20210717
  Serious: Yes (Death)
  Sender: FDA-Public Use
  Company Number: NVSC2021US128883

PATIENT
  Sex: Female

DRUGS (1)
  1. HYCAMTIN [Suspect]
     Active Substance: TOPOTECAN HYDROCHLORIDE
     Indication: LUNG NEOPLASM MALIGNANT
     Dosage: 3 MG, QD (3 CAPSULES ONCE DAILY FOR 5 DAYS EVERY 3 WEEKS)
     Route: 048
     Dates: start: 20210428

REACTIONS (2)
  - Malignant neoplasm progression [Fatal]
  - Lung neoplasm malignant [Fatal]
